FAERS Safety Report 7297856-4 (Version None)
Quarter: 2011Q1

REPORT INFORMATION
  Report Type: 
  Country: None (occurrence: None)
  Receive Date: 20110217
  Receipt Date: 20101105
  Transmission Date: 20110831
  Serious: No
  Sender: FDA-Public Use
  Company Number: US-KINGPHARMUSA00001-K201001359

PATIENT
  Sex: Male

DRUGS (4)
  1. HYZAAR [Concomitant]
     Dosage: UNK
  2. FLECTOR [Suspect]
     Dosage: UNK PATCH, UNK
     Route: 061
  3. COUMADIN [Concomitant]
     Dosage: UNK
  4. TOPROL-XL [Concomitant]
     Dosage: UNK

REACTIONS (1)
  - ATRIAL FIBRILLATION [None]
